FAERS Safety Report 23123563 (Version 2)
Quarter: 2024Q4

REPORT INFORMATION
  Report Type: Spontaneous
  Country: NO (occurrence: NO)
  Receive Date: 20231030
  Receipt Date: 20241001
  Transmission Date: 20250114
  Serious: Yes (Hospitalization)
  Sender: NOVO NORDISK
  Company Number: NO-NOVOPROD-1131686

PATIENT
  Sex: Male
  Weight: 3.99 kg

DRUGS (2)
  1. OZEMPIC [Suspect]
     Active Substance: SEMAGLUTIDE
     Indication: Obesity
     Dosage: 0.25MG (INCREASED THE DOSE AFTER FOUR WEEKS)
     Route: 064
     Dates: start: 202211
  2. OZEMPIC [Suspect]
     Active Substance: SEMAGLUTIDE
     Dosage: UNK
     Route: 064
     Dates: end: 20221216

REACTIONS (3)
  - Hyperbilirubinaemia [Recovered/Resolved]
  - Polycythaemia [Recovered/Resolved]
  - Foetal exposure during pregnancy [Recovered/Resolved]

NARRATIVE: CASE EVENT DATE: 20221101
